FAERS Safety Report 16867011 (Version 4)
Quarter: 2020Q2

REPORT INFORMATION
  Report Type: Spontaneous
  Country: FR (occurrence: FR)
  Receive Date: 20190930
  Receipt Date: 20200605
  Transmission Date: 20200713
  Serious: Yes (Other)
  Sender: FDA-Public Use
  Company Number: FR-MYLANLABS-2019M1089715

PATIENT
  Age: 54 Year
  Sex: Female
  Weight: 59 kg

DRUGS (5)
  1. OROMONE 1 MG, COMPRIM? PELLICUL? [Suspect]
     Active Substance: ESTRADIOL
     Indication: ACNE
     Dosage: UNK
     Route: 048
     Dates: start: 200502
  2. SPIRONOLACTONE. [Suspect]
     Active Substance: SPIRONOLACTONE
     Indication: ALOPECIA
     Dosage: 50 MILLIGRAM, QD
     Route: 048
     Dates: start: 201712
  3. ANDROCURE [Suspect]
     Active Substance: CYPROTERONE ACETATE
     Indication: ALOPECIA
     Dosage: 1 DOSAGE FORM, QD
     Route: 048
     Dates: start: 2004, end: 201707
  4. DIANE (CYPROTERONE ACETATE\ETHINYL ESTRADIOL) [Suspect]
     Active Substance: CYPROTERONE ACETATE\ETHINYL ESTRADIOL
     Dosage: UNK
     Route: 048
     Dates: start: 1998, end: 2004
  5. DIANE (CYPROTERONE ACETATE\ETHINYL ESTRADIOL) [Suspect]
     Active Substance: CYPROTERONE ACETATE\ETHINYL ESTRADIOL
     Indication: CONTRACEPTION
     Dosage: UNK
     Route: 048
     Dates: start: 1980, end: 2004

REACTIONS (1)
  - Meningioma [Recovering/Resolving]

NARRATIVE: CASE EVENT DATE: 20190207
